FAERS Safety Report 5585848-2 (Version None)
Quarter: 2008Q1

REPORT INFORMATION
  Report Type: 
  Country: None (occurrence: None)
  Receive Date: 20080104
  Receipt Date: 20071221
  Transmission Date: 20080703
  Serious: Yes (Hospitalization)
  Sender: FDA-Public Use
  Company Number: POMP-1000016

PATIENT
  Age: 3 Year
  Weight: 16 kg

DRUGS (5)
  1. MYOZYME [Suspect]
     Indication: GLYCOGEN STORAGE DISEASE TYPE II
     Dosage: 20 MG/KG, Q2W, INTRAVENOUS
     Route: 042
     Dates: start: 20050328
  2. FLUTICASONE PROPIONATE [Concomitant]
  3. FERROUS SULPHATE (FERROUS SULFATE) [Concomitant]
  4. SALBUTAMOL (SALBUTAMOL SULFATE) [Concomitant]
  5. CARNITENE (CARNITINE HYDROCHLORIDE) [Concomitant]

REACTIONS (5)
  - ATELECTASIS [None]
  - BRONCHOSPASM [None]
  - DEVICE FAILURE [None]
  - PNEUMONIA [None]
  - RESPIRATORY DISTRESS [None]
